FAERS Safety Report 25086950 (Version 3)
Quarter: 2025Q2

REPORT INFORMATION
  Report Type: Spontaneous
  Country: DE (occurrence: DE)
  Receive Date: 20250318
  Receipt Date: 20250410
  Transmission Date: 20250716
  Serious: Yes (Hospitalization, Other)
  Sender: NOVO NORDISK
  Company Number: DE-NOVOPROD-1386991

PATIENT
  Age: 57 Year
  Sex: Male
  Weight: 84 kg

DRUGS (6)
  1. OZEMPIC [Suspect]
     Active Substance: SEMAGLUTIDE
     Indication: Type 2 diabetes mellitus
     Dosage: 0.5 MG, QW
     Route: 058
     Dates: start: 20220225, end: 202406
  2. OZEMPIC [Suspect]
     Active Substance: SEMAGLUTIDE
     Indication: Type 2 diabetes mellitus
     Dates: start: 202404
  3. LEVEMIR [Concomitant]
     Active Substance: INSULIN DETEMIR
     Indication: Type 2 diabetes mellitus
     Route: 058
     Dates: start: 20231116
  4. METFORMIN [Concomitant]
     Active Substance: METFORMIN HYDROCHLORIDE
     Indication: Type 2 diabetes mellitus
     Dosage: 1000 MG, BID (1-0-1)
     Route: 048
     Dates: start: 2009
  5. REPAGLINIDE [Concomitant]
     Active Substance: REPAGLINIDE
     Indication: Type 2 diabetes mellitus
     Dosage: 1 MG, BID (DOSE: 1-0-1)
     Route: 048
     Dates: end: 202411
  6. CANDESARTAN [Concomitant]
     Active Substance: CANDESARTAN
     Indication: Product used for unknown indication

REACTIONS (4)
  - Pancreatic carcinoma [Unknown]
  - Lipase increased [Unknown]
  - Glycosylated haemoglobin increased [Not Recovered/Not Resolved]
  - Post procedural diarrhoea [Unknown]

NARRATIVE: CASE EVENT DATE: 20240101
